FAERS Safety Report 18378679 (Version 6)
Quarter: 2022Q1

REPORT INFORMATION
  Report Type: Spontaneous
  Country: JP (occurrence: JP)
  Receive Date: 20201013
  Receipt Date: 20220218
  Transmission Date: 20220423
  Serious: Yes (Hospitalization, Other)
  Sender: FDA-Public Use
  Company Number: JP-BRISTOL-MYERS SQUIBB COMPANY-BMS-2020-083319

PATIENT
  Age: 76 Year
  Sex: Female
  Weight: 46.6 kg

DRUGS (7)
  1. YERVOY [Suspect]
     Active Substance: IPILIMUMAB
     Indication: Malignant melanoma
     Dosage: UNK, ONE TIME DOSE
     Route: 041
     Dates: start: 20200712, end: 20200712
  2. YERVOY [Suspect]
     Active Substance: IPILIMUMAB
     Dosage: UNK, ONE TIME DOSE
     Route: 041
     Dates: start: 20200801, end: 20200801
  3. YERVOY [Suspect]
     Active Substance: IPILIMUMAB
     Dosage: UNK, ONE TIME DOSE
     Route: 041
     Dates: start: 20200822, end: 20200822
  4. OPDIVO [Suspect]
     Active Substance: NIVOLUMAB
     Indication: Malignant melanoma
     Dosage: UNK UNK, ONE TIME DOSE
     Route: 041
     Dates: start: 20200712, end: 20200712
  5. OPDIVO [Suspect]
     Active Substance: NIVOLUMAB
     Dosage: UNK, ONE TIME DOSE
     Route: 041
     Dates: start: 20200801, end: 20200801
  6. OPDIVO [Suspect]
     Active Substance: NIVOLUMAB
     Dosage: UNK, ONE TIME DOSE
     Route: 041
     Dates: start: 20200822, end: 20200822
  7. OPDIVO [Suspect]
     Active Substance: NIVOLUMAB
     Dosage: UNK
     Route: 041
     Dates: start: 20201005

REACTIONS (5)
  - Secondary adrenocortical insufficiency [Unknown]
  - Secondary hypothyroidism [Unknown]
  - Liver disorder [Unknown]
  - Hypopituitarism [Unknown]
  - Hypophysitis [Unknown]

NARRATIVE: CASE EVENT DATE: 20200902
